FAERS Safety Report 15806564 (Version 1)
Quarter: 2019Q1

REPORT INFORMATION
  Report Type: Spontaneous
  Country: ES (occurrence: ES)
  Receive Date: 20190110
  Receipt Date: 20190110
  Transmission Date: 20190417
  Serious: Yes (Hospitalization)
  Sender: FDA-Public Use
  Company Number: ES-ASTRAZENECA-2019SE04506

PATIENT
  Age: 61 Year
  Sex: Female
  Weight: 82.5 kg

DRUGS (5)
  1. ATORVASTATIN [Concomitant]
     Active Substance: ATORVASTATIN
  2. METFORMIN [Concomitant]
     Active Substance: METFORMIN HYDROCHLORIDE
  3. FORXIGA 10MG COMPRIMIDOS RECUBIERTOS CON PELICULA [Suspect]
     Active Substance: DAPAGLIFLOZIN
     Indication: TYPE 2 DIABETES MELLITUS
     Route: 048
     Dates: start: 20180601, end: 20180803
  4. LANTUS SOLOSTAR 100 UNIDADES/ML SOLUCION INYECTABLE EN PLUMA PRECAR... [Concomitant]
  5. MICARDISPLUS 80 MG/12,5 MG COMPRIMIDOS [Concomitant]

REACTIONS (3)
  - Electrolyte imbalance [Recovered/Resolved]
  - Hypernatraemia [Recovered/Resolved]
  - Hypovolaemia [Recovered/Resolved]

NARRATIVE: CASE EVENT DATE: 20180610
